FAERS Safety Report 8170537-0 (Version None)
Quarter: 2012Q1

REPORT INFORMATION
  Report Type: 
  Country: None (occurrence: None)
  Receive Date: 20120228
  Receipt Date: 20120217
  Transmission Date: 20120608
  Serious: Yes (Hospitalization)
  Sender: FDA-Public Use
  Company Number: US-BAXTER-2012BH004003

PATIENT
  Sex: Male

DRUGS (8)
  1. EXTRANEAL [Suspect]
     Route: 033
     Dates: start: 20120201
  2. DIANEAL [Suspect]
     Route: 033
     Dates: start: 20120201
  3. DIANEAL [Suspect]
     Route: 033
     Dates: start: 20120201
  4. DIANEAL [Suspect]
     Indication: PERITONEAL DIALYSIS
     Route: 033
     Dates: end: 20120207
  5. DIANEAL [Suspect]
     Indication: PERITONEAL DIALYSIS
     Route: 033
     Dates: end: 20120207
  6. DIANEAL [Suspect]
     Route: 033
     Dates: start: 20120201
  7. DIANEAL [Suspect]
     Indication: ASCITES
     Route: 033
     Dates: end: 20120207
  8. EXTRANEAL [Suspect]
     Indication: PERITONEAL DIALYSIS
     Route: 033
     Dates: end: 20120207

REACTIONS (1)
  - CORONARY ARTERY OCCLUSION [None]
